FAERS Safety Report 12975594 (Version 1)
Quarter: 2016Q4

REPORT INFORMATION
  Report Type: Spontaneous
  Country: BR (occurrence: BR)
  Receive Date: 20161125
  Receipt Date: 20161125
  Transmission Date: 20170207
  Serious: Yes (Other)
  Sender: FDA-Public Use
  Company Number: BR-009507513-1610BRA009542

PATIENT
  Sex: Female
  Weight: 71 kg

DRUGS (3)
  1. JANUVIA [Suspect]
     Active Substance: SITAGLIPTIN PHOSPHATE
     Indication: PROPHYLAXIS
     Dosage: 25 MG, UNK
     Dates: start: 2016, end: 201611
  2. JANUVIA [Suspect]
     Active Substance: SITAGLIPTIN PHOSPHATE
     Indication: TYPE 1 DIABETES MELLITUS
     Dosage: UNK MG, UNK
     Dates: start: 201603, end: 20160317
  3. ZETIA [Suspect]
     Active Substance: EZETIMIBE
     Indication: PROPHYLAXIS
     Dosage: 1 TABLET, QD
     Dates: start: 201610, end: 201610

REACTIONS (8)
  - Blood glucose increased [Unknown]
  - Therapeutic response decreased [Unknown]
  - Breast operation [Recovered/Resolved]
  - Drug dose omission [Unknown]
  - Myalgia [Recovering/Resolving]
  - Arthralgia [Recovering/Resolving]
  - Product use issue [Unknown]
  - Wrong technique in product usage process [Unknown]

NARRATIVE: CASE EVENT DATE: 201603
